FAERS Safety Report 6945077-4 (Version None)
Quarter: 2010Q3

REPORT INFORMATION
  Report Type: 
  Country: None (occurrence: None)
  Receive Date: 20100827
  Receipt Date: 20100823
  Transmission Date: 20110219
  Serious: Yes (Life-Threatening, Hospitalization)
  Sender: FDA-Public Use
  Company Number: PHHY2010FR41148

PATIENT
  Sex: Male
  Weight: 70 kg

DRUGS (5)
  1. COMTAN [Suspect]
     Indication: PARKINSON'S DISEASE
     Dosage: 800 MG DAILY (4 TABLET DAILY)
     Route: 048
     Dates: start: 20090616, end: 20100430
  2. SINEMET [Concomitant]
     Dosage: 250, (4 DF DAILY)
     Dates: start: 20040101
  3. EFFEXOR XR [Concomitant]
     Dosage: 37.5, (1 DF DAILY)
     Dates: start: 20080601
  4. XANAX [Concomitant]
     Dosage: 0.5, (1 DF DAILY)
     Dates: start: 20080601
  5. LOXEN [Concomitant]
     Dosage: UNK

REACTIONS (10)
  - ACUTE PULMONARY OEDEMA [None]
  - ASTHENIA [None]
  - CARDIAC FAILURE [None]
  - COLON ADENOMA [None]
  - COLONIC POLYP [None]
  - DYSPLASIA [None]
  - DYSPNOEA [None]
  - HIATUS HERNIA [None]
  - IRON DEFICIENCY [None]
  - MICROCYTIC ANAEMIA [None]
